FAERS Safety Report 10197402 (Version 3)
Quarter: 2014Q3

REPORT INFORMATION
  Report Type: Spontaneous
  Country: IT (occurrence: IT)
  Receive Date: 20140527
  Receipt Date: 20140707
  Transmission Date: 20150326
  Serious: Yes (Hospitalization)
  Sender: FDA-Public Use
  Company Number: IT-PFIZER INC-2014144451

PATIENT
  Age: 27 Year
  Sex: Male

DRUGS (6)
  1. CARBOLITHIUM [Suspect]
     Active Substance: LITHIUM CARBONATE
     Dosage: UNK
     Route: 048
     Dates: start: 201306
  2. CARBOLITHIUM [Suspect]
     Active Substance: LITHIUM CARBONATE
     Dosage: 5 DF, TOTAL
     Route: 048
     Dates: start: 20140519, end: 20140519
  3. ZOLOFT [Suspect]
     Active Substance: SERTRALINE HYDROCHLORIDE
     Dosage: 5 DF, TOTAL
     Route: 048
     Dates: start: 20140519, end: 20140519
  4. SEROQUEL [Suspect]
     Active Substance: QUETIAPINE FUMARATE
     Dosage: 20 DF, TOTAL
     Route: 048
     Dates: start: 20140519, end: 20140519
  5. SEROQUEL [Suspect]
     Active Substance: QUETIAPINE FUMARATE
     Dosage: 150 UNK, UNK
     Route: 048
     Dates: start: 201306
  6. ZOLOFT [Suspect]
     Active Substance: SERTRALINE HYDROCHLORIDE
     Dosage: 50 UNK, UNK
     Route: 048
     Dates: start: 201306

REACTIONS (3)
  - Drug abuse [Recovering/Resolving]
  - Intentional self-injury [Recovering/Resolving]
  - Sopor [Recovering/Resolving]

NARRATIVE: CASE EVENT DATE: 20140519
